FAERS Safety Report 23651124 (Version 2)
Quarter: 2024Q2

REPORT INFORMATION
  Report Type: Spontaneous
  Country: CA (occurrence: CA)
  Receive Date: 20240320
  Receipt Date: 20240605
  Transmission Date: 20240716
  Serious: Yes (Death, Life-Threatening, Hospitalization, Disabling, Congenital Anomaly, Other)
  Sender: FDA-Public Use
  Company Number: CA-HALEON-CACH2024AMR013688

PATIENT
  Age: 40 Year
  Sex: Female
  Weight: 96 kg

DRUGS (299)
  1. DICLOFENAC DIETHYLAMINE [Suspect]
     Active Substance: DICLOFENAC DIETHYLAMINE
     Indication: Product used for unknown indication
     Dosage: UNK
  2. FOSAMAX [Suspect]
     Active Substance: ALENDRONATE SODIUM
     Indication: Rheumatoid arthritis
     Route: 016
  3. CIMZIA [Suspect]
     Active Substance: CERTOLIZUMAB PEGOL
     Indication: Rheumatoid arthritis
     Route: 058
  4. FLUMETHASONE PIVALATE [Suspect]
     Active Substance: FLUMETHASONE PIVALATE
     Indication: Product used for unknown indication
  5. SULFASALAZINE [Suspect]
     Active Substance: SULFASALAZINE
     Indication: Rheumatoid arthritis
     Route: 048
  6. SULFASALAZINE [Suspect]
     Active Substance: SULFASALAZINE
     Indication: Rheumatoid arthritis
  7. SULFASALAZINE [Suspect]
     Active Substance: SULFASALAZINE
     Indication: Rheumatoid arthritis
  8. TOCILIZUMAB [Suspect]
     Active Substance: TOCILIZUMAB
     Indication: Rheumatoid arthritis
     Route: 058
  9. TOCILIZUMAB [Suspect]
     Active Substance: TOCILIZUMAB
     Indication: Rheumatoid arthritis
     Route: 042
  10. TOCILIZUMAB [Suspect]
     Active Substance: TOCILIZUMAB
     Indication: Rheumatoid arthritis
     Route: 042
  11. FLUMETHASONE PIVALATE [Suspect]
     Active Substance: FLUMETHASONE PIVALATE
     Indication: Product used for unknown indication
     Route: 003
  12. ORENCIA [Suspect]
     Active Substance: ABATACEPT
     Indication: Rheumatoid arthritis
  13. ISOPROPYL ALCOHOL [Suspect]
     Active Substance: ISOPROPYL ALCOHOL
     Indication: Product used for unknown indication
     Route: 061
  14. DICLOFENAC SODIUM [Suspect]
     Active Substance: DICLOFENAC\DICLOFENAC SODIUM
     Indication: Product used for unknown indication
  15. HUMIRA [Suspect]
     Active Substance: ADALIMUMAB
     Indication: Rheumatoid arthritis
     Route: 058
  16. REMICADE [Suspect]
     Active Substance: INFLIXIMAB
     Indication: Rheumatoid arthritis
     Route: 058
  17. REMICADE [Suspect]
     Active Substance: INFLIXIMAB
     Indication: Rheumatoid arthritis
     Route: 042
  18. ALENDRONIC ACID [Suspect]
     Active Substance: ALENDRONIC ACID
     Indication: Rheumatoid arthritis
  19. RAMIPRIL [Suspect]
     Active Substance: RAMIPRIL
     Indication: Rheumatoid arthritis
     Route: 042
  20. THIAMINE HYDROCHLORIDE [Suspect]
     Active Substance: THIAMINE HYDROCHLORIDE
     Indication: Product used for unknown indication
  21. DESOXIMETASONE [Suspect]
     Active Substance: DESOXIMETASONE
     Indication: Rheumatoid arthritis
     Route: 058
  22. XELJANZ [Suspect]
     Active Substance: TOFACITINIB CITRATE
     Indication: Product used for unknown indication
     Route: 048
  23. XELJANZ [Suspect]
     Active Substance: TOFACITINIB CITRATE
     Indication: Product used for unknown indication
     Route: 048
  24. ERELZI [Suspect]
     Active Substance: ETANERCEPT-SZZS
     Indication: Product used for unknown indication
     Route: 058
  25. VITAMIN D3 [Suspect]
     Active Substance: CHOLECALCIFEROL
     Indication: Product used for unknown indication
  26. METHOTREXATE [Suspect]
     Active Substance: METHOTREXATE
     Indication: Rheumatoid arthritis
     Route: 058
  27. CELEBREX [Suspect]
     Active Substance: CELECOXIB
     Indication: Product used for unknown indication
  28. LAMICTAL [Suspect]
     Active Substance: LAMOTRIGINE
     Indication: Product used for unknown indication
  29. XELJANZ [Suspect]
     Active Substance: TOFACITINIB CITRATE
     Indication: Rheumatoid arthritis
  30. HUMIRA [Suspect]
     Active Substance: ADALIMUMAB
     Indication: Rheumatoid arthritis
     Route: 057
  31. DESOXIMETASONE [Suspect]
     Active Substance: DESOXIMETASONE
     Indication: Rheumatoid arthritis
     Route: 003
  32. DESOXIMETASONE [Suspect]
     Active Substance: DESOXIMETASONE
     Indication: Rheumatoid arthritis
     Route: 048
  33. TOFACITINIB CITRATE [Suspect]
     Active Substance: TOFACITINIB CITRATE
     Indication: Rheumatoid arthritis
  34. ERGOCALCIFEROL [Suspect]
     Active Substance: ERGOCALCIFEROL
     Indication: Product used for unknown indication
  35. ARAVA [Suspect]
     Active Substance: LEFLUNOMIDE
     Indication: Rheumatoid arthritis
     Route: 048
  36. GOLIMUMAB [Suspect]
     Active Substance: GOLIMUMAB
     Indication: Rheumatoid arthritis
  37. NUCALA [Suspect]
     Active Substance: MEPOLIZUMAB
     Indication: Rheumatoid arthritis
  38. TOPIRAMATE [Suspect]
     Active Substance: TOPIRAMATE
     Indication: Rheumatoid arthritis
  39. GOLD SODIUM THIOMALATE [Suspect]
     Active Substance: GOLD SODIUM THIOMALATE
     Indication: Product used for unknown indication
  40. GOLD SODIUM THIOMALATE [Suspect]
     Active Substance: GOLD SODIUM THIOMALATE
     Indication: Product used for unknown indication
  41. LEFLUNOMIDE [Suspect]
     Active Substance: LEFLUNOMIDE
     Indication: Product used for unknown indication
  42. SULFASALAZINE [Suspect]
     Active Substance: SULFASALAZINE
     Indication: Rheumatoid arthritis
  43. TRAMADOL HYDROCHLORIDE [Suspect]
     Active Substance: TRAMADOL HYDROCHLORIDE
     Indication: Product used for unknown indication
  44. RITUXIMAB [Suspect]
     Active Substance: RITUXIMAB
     Indication: Rheumatoid arthritis
  45. BERINERT [Suspect]
     Active Substance: HUMAN C1-ESTERASE INHIBITOR
     Indication: Product used for unknown indication
  46. PREDNISONE [Suspect]
     Active Substance: PREDNISONE
     Indication: Rheumatoid arthritis
  47. AIMOVIG [Suspect]
     Active Substance: ERENUMAB-AOOE
     Indication: Product used for unknown indication
  48. RIBOFLAVIN [Suspect]
     Active Substance: RIBOFLAVIN
     Indication: Product used for unknown indication
  49. PHTHALYLSULFATHIAZOLE [Suspect]
     Active Substance: PHTHALYLSULFATHIAZOLE
     Indication: Rheumatoid arthritis
  50. NICOTINAMIDE [Suspect]
     Active Substance: NIACINAMIDE
     Indication: Product used for unknown indication
  51. CALCIUM ASCORBATE [Suspect]
     Active Substance: CALCIUM ASCORBATE
     Indication: Product used for unknown indication
  52. NAPROXEN SODIUM [Suspect]
     Active Substance: NAPROXEN\NAPROXEN SODIUM
     Indication: Rheumatoid arthritis
  53. FOLIC ACID [Suspect]
     Active Substance: FOLIC ACID
     Indication: Rheumatoid arthritis
  54. ADALIMUMAB [Suspect]
     Active Substance: ADALIMUMAB\ISOPROPYL ALCOHOL
     Indication: Product used for unknown indication
     Dosage: UNK
     Route: 058
  55. ADALIMUMAB [Suspect]
     Active Substance: ADALIMUMAB\ISOPROPYL ALCOHOL
     Indication: Rheumatoid arthritis
     Dosage: 40 MG 1 EVERY 2 WEEKS
     Route: 058
  56. LEFLUNOMIDE [Suspect]
     Active Substance: LEFLUNOMIDE
     Indication: Rheumatoid arthritis
     Dosage: 10 MG
     Route: 048
  57. LEFLUNOMIDE [Suspect]
     Active Substance: LEFLUNOMIDE
     Dosage: UNK MG
     Route: 048
  58. METHOTREXATE [Suspect]
     Active Substance: METHOTREXATE
     Indication: Rheumatoid arthritis
     Dosage: 25 MG 1 EVERY 1 DAYS
     Route: 048
  59. METHOTREXATE [Suspect]
     Active Substance: METHOTREXATE
     Indication: Product used for unknown indication
     Dosage: 15 MG 1 EVERY 1 WEEK
     Route: 058
  60. METHOTREXATE [Suspect]
     Active Substance: METHOTREXATE
     Dosage: 1 MG
     Route: 048
  61. METHOTREXATE [Suspect]
     Active Substance: METHOTREXATE
     Dosage: 25 MG 1 EVERY 12 HOURS
     Route: 048
  62. MAGNESIUM CITRATE [Suspect]
     Active Substance: MAGNESIUM CITRATE
     Indication: Product used for unknown indication
     Dosage: UNK
     Route: 065
  63. FOLIC ACID [Suspect]
     Active Substance: FOLIC ACID
     Indication: Rheumatoid arthritis
     Dosage: 25 MG
     Route: 048
  64. FOLIC ACID [Suspect]
     Active Substance: FOLIC ACID
     Indication: Product used for unknown indication
     Dosage: 500 MG
     Route: 048
  65. FOLIC ACID [Suspect]
     Active Substance: FOLIC ACID
     Dosage: 0.5 MG
     Route: 048
  66. FOLIC ACID [Suspect]
     Active Substance: FOLIC ACID
     Dosage: 5 MG
  67. FOLIC ACID [Suspect]
     Active Substance: FOLIC ACID
     Dosage: 15 MG
     Route: 048
  68. FOLIC ACID [Suspect]
     Active Substance: FOLIC ACID
     Dosage: UNK
  69. FOLIC ACID [Suspect]
     Active Substance: FOLIC ACID
     Dosage: 1 MG
     Route: 058
  70. VITAMIN C [Suspect]
     Active Substance: ASCORBIC ACID
     Indication: Product used for unknown indication
     Dosage: UNK
  71. ALENDRONIC ACID [Suspect]
     Active Substance: ALENDRONIC ACID
     Indication: Product used for unknown indication
     Dosage: UNK
     Route: 048
  72. ALENDRONIC ACID [Suspect]
     Active Substance: ALENDRONIC ACID
     Indication: Rheumatoid arthritis
     Dosage: UNK
     Route: 048
  73. MYRBETRIQ [Suspect]
     Active Substance: MIRABEGRON
     Indication: Product used for unknown indication
     Dosage: 1 DF 1 EVERY 1 DAY
     Route: 065
  74. MYRBETRIQ [Suspect]
     Active Substance: MIRABEGRON
     Dosage: 1 DF 1 EVERY 2 DAYS
     Route: 065
  75. MINOCYCLINE [Suspect]
     Active Substance: MINOCYCLINE HYDROCHLORIDE
     Indication: Product used for unknown indication
     Dosage: UNK
     Route: 065
  76. FLUMETHASONE PIVALATE [Suspect]
     Active Substance: FLUMETHASONE PIVALATE
     Indication: Product used for unknown indication
     Dosage: UNK
     Route: 003
  77. FLUMETHASONE PIVALATE [Suspect]
     Active Substance: FLUMETHASONE PIVALATE
     Dosage: UNK
     Route: 065
  78. SIRUKUMAB [Suspect]
     Active Substance: SIRUKUMAB
     Indication: Product used for unknown indication
  79. PHENYLEPHRINE HYDROCHLORIDE [Suspect]
     Active Substance: PHENYLEPHRINE HYDROCHLORIDE
     Indication: Rheumatoid arthritis
     Dosage: 10 MG
     Route: 030
  80. DICLOFENAC SODIUM [Suspect]
     Active Substance: DICLOFENAC\DICLOFENAC SODIUM
     Indication: Product used for unknown indication
     Dosage: UNK
  81. METHYLPREDNISOLONE SODIUM SUCCINATE [Suspect]
     Active Substance: METHYLPREDNISOLONE SODIUM SUCCINATE
     Indication: Product used for unknown indication
     Dosage: UNK
     Route: 065
  82. GOLD [Suspect]
     Active Substance: GOLD
     Indication: Product used for unknown indication
     Dosage: UNK
  83. METHYLPREDNISOLONE [Suspect]
     Active Substance: METHYLPREDNISOLONE
     Indication: Product used for unknown indication
     Dosage: 80 MG
     Route: 065
  84. RAMIPRIL [Suspect]
     Active Substance: RAMIPRIL
     Indication: Rheumatoid arthritis
     Dosage: UNK
     Route: 042
  85. RAMIPRIL [Suspect]
     Active Substance: RAMIPRIL
     Dosage: UNK
     Route: 016
  86. RAMIPRIL [Suspect]
     Active Substance: RAMIPRIL
     Dosage: UNK
     Route: 042
  87. CALCIUM [Suspect]
     Active Substance: CALCIUM
     Indication: Product used for unknown indication
     Dosage: UNK
  88. CALCIUM GLUBIONATE [Suspect]
     Active Substance: CALCIUM GLUBIONATE
     Indication: Product used for unknown indication
     Dosage: UNK
     Route: 016
  89. CALCIUM GLUBIONATE [Suspect]
     Active Substance: CALCIUM GLUBIONATE
     Dosage: UNK
     Route: 016
  90. NAPROXEN SODIUM [Suspect]
     Active Substance: NAPROXEN\NAPROXEN SODIUM
     Indication: Rheumatoid arthritis
     Dosage: 500 MG
     Route: 065
  91. NAPROXEN SODIUM [Suspect]
     Active Substance: NAPROXEN\NAPROXEN SODIUM
     Indication: Product used for unknown indication
     Dosage: 500 MG 1 EVERY 1 DAYS
  92. HYDROCORTISONE [Suspect]
     Active Substance: HYDROCORTISONE\HYDROCORTISONE ACETATE
     Indication: Product used for unknown indication
     Dosage: UNK
  93. TRAMADOL HYDROCHLORIDE [Suspect]
     Active Substance: TRAMADOL HYDROCHLORIDE
     Indication: Product used for unknown indication
     Dosage: UNK
  94. SIMPONI [Suspect]
     Active Substance: GOLIMUMAB
     Indication: Rheumatoid arthritis
     Dosage: UNK
     Route: 058
  95. SIMPONI [Suspect]
     Active Substance: GOLIMUMAB
     Dosage: 50 MG
  96. SIMPONI [Suspect]
     Active Substance: GOLIMUMAB
     Dosage: UNK
     Route: 065
  97. RITUXIMAB [Suspect]
     Active Substance: RITUXIMAB
     Indication: Rheumatoid arthritis
     Dosage: 1 EVERY 1 DAYS
     Route: 042
  98. RITUXIMAB [Suspect]
     Active Substance: RITUXIMAB
     Dosage: UNK
     Route: 042
  99. RITUXIMAB [Suspect]
     Active Substance: RITUXIMAB
     Dosage: 365 MG
     Route: 065
  100. RITUXIMAB [Suspect]
     Active Substance: RITUXIMAB
     Dosage: 2000 MG 1 EVERY 1 DAY
     Route: 065
  101. RITUXIMAB [Suspect]
     Active Substance: RITUXIMAB
     Dosage: UNK
     Route: 043
  102. RITUXIMAB [Suspect]
     Active Substance: RITUXIMAB
     Dosage: 1000 MG 1 EVERY 12 HOURS
     Route: 065
  103. RITUXIMAB [Suspect]
     Active Substance: RITUXIMAB
     Dosage: UNK
     Route: 058
  104. RITUXIMAB [Suspect]
     Active Substance: RITUXIMAB
     Dosage: UNK
     Route: 042
  105. RITUXIMAB [Suspect]
     Active Substance: RITUXIMAB
     Dosage: UNK
     Route: 042
  106. LAMICTAL [Suspect]
     Active Substance: LAMOTRIGINE
     Indication: Product used for unknown indication
     Dosage: 50 MG 1 EVERY 2 DAYS
     Route: 048
  107. LAMICTAL [Suspect]
     Active Substance: LAMOTRIGINE
     Dosage: 25 MG 1 EVERY 2 DAYS
     Route: 048
  108. LAMICTAL [Suspect]
     Active Substance: LAMOTRIGINE
     Dosage: 50 MG 1 EVERY 2 DAYS
     Route: 048
  109. MYOCHRYSINE [Suspect]
     Active Substance: GOLD SODIUM THIOMALATE
     Indication: Rheumatoid arthritis
     Dosage: UNK
     Route: 030
  110. MYOCHRYSINE [Suspect]
     Active Substance: GOLD SODIUM THIOMALATE
     Dosage: UNK
     Route: 030
  111. CALCIUM CITRATE [Suspect]
     Active Substance: CALCIUM CITRATE
     Indication: Product used for unknown indication
     Dosage: UNK
  112. CETIRIZINE [Suspect]
     Active Substance: CETIRIZINE HYDROCHLORIDE
     Indication: Product used for unknown indication
     Dosage: 25 MG
  113. CETIRIZINE [Suspect]
     Active Substance: CETIRIZINE HYDROCHLORIDE
     Indication: Rheumatoid arthritis
     Dosage: 10 MG
  114. CETIRIZINE [Suspect]
     Active Substance: CETIRIZINE HYDROCHLORIDE
     Dosage: 10 MG
  115. CETIRIZINE [Suspect]
     Active Substance: CETIRIZINE HYDROCHLORIDE
     Dosage: 25 MG
  116. CETIRIZINE [Suspect]
     Active Substance: CETIRIZINE HYDROCHLORIDE
     Dosage: UNK
  117. INFLIXIMAB [Suspect]
     Active Substance: INFLIXIMAB
     Indication: Rheumatoid arthritis
     Dosage: 400 MG CYCLICAL
     Route: 042
  118. INFLIXIMAB [Suspect]
     Active Substance: INFLIXIMAB
     Indication: Product used for unknown indication
     Dosage: 500 MG
     Route: 042
  119. INFLIXIMAB [Suspect]
     Active Substance: INFLIXIMAB
     Dosage: 400 MG CYCLICAL
     Route: 042
  120. INFLIXIMAB [Suspect]
     Active Substance: INFLIXIMAB
     Dosage: 300 MG
     Route: 042
  121. INFLIXIMAB [Suspect]
     Active Substance: INFLIXIMAB
     Dosage: CYCLICAL
     Route: 058
  122. DOMPERIDONE MALEATE [Suspect]
     Active Substance: DOMPERIDONE MALEATE
     Indication: Product used for unknown indication
     Dosage: UNK
  123. DOMPERIDONE MALEATE [Suspect]
     Active Substance: DOMPERIDONE MALEATE
     Dosage: UNK
  124. MINOCYCLINE HYDROCHLORIDE [Suspect]
     Active Substance: MINOCYCLINE HYDROCHLORIDE
     Indication: Product used for unknown indication
     Dosage: UNK
     Route: 065
  125. NICOTINAMIDE [Suspect]
     Active Substance: NIACINAMIDE
     Indication: Product used for unknown indication
     Dosage: 1 UNK
  126. ACETAMINOPHEN AND CODEINE [Suspect]
     Active Substance: ACETAMINOPHEN\CODEINE PHOSPHATE
     Indication: Product used for unknown indication
     Dosage: UNK
  127. FOLIC ACID [Suspect]
     Active Substance: FOLIC ACID
     Indication: Product used for unknown indication
     Dosage: 1 MG
     Route: 058
  128. FOLIC ACID [Suspect]
     Active Substance: FOLIC ACID
     Indication: Rheumatoid arthritis
     Dosage: 5 MG
     Route: 065
  129. FOLIC ACID [Suspect]
     Active Substance: FOLIC ACID
     Dosage: UNK
     Route: 065
  130. FOLIC ACID [Suspect]
     Active Substance: FOLIC ACID
     Dosage: 5 MG
     Route: 048
  131. FOLIC ACID [Suspect]
     Active Substance: FOLIC ACID
     Dosage: 0.5 MG
     Route: 048
  132. FOLIC ACID [Suspect]
     Active Substance: FOLIC ACID
     Dosage: 500 MG
     Route: 048
  133. AZATHIOPRINE [Suspect]
     Active Substance: AZATHIOPRINE
     Indication: Product used for unknown indication
     Dosage: UNK
  134. AZATHIOPRINE [Suspect]
     Active Substance: AZATHIOPRINE
     Indication: Rheumatoid arthritis
     Dosage: UNK
  135. OXYCODONE TEREPHTHALATE [Suspect]
     Active Substance: OXYCODONE TEREPHTHALATE
     Indication: Product used for unknown indication
     Dosage: UNK
     Route: 065
  136. OXYCODONE [Suspect]
     Active Substance: OXYCODONE\OXYCODONE HYDROCHLORIDE
     Indication: Product used for unknown indication
     Dosage: UNK
     Route: 065
  137. BOTULINUM TOXIN TYPE A [Suspect]
     Active Substance: BOTULINUM TOXIN TYPE A
     Indication: Product used for unknown indication
     Dosage: UNK
  138. NAPROXEN [Suspect]
     Active Substance: NAPROXEN
     Indication: Product used for unknown indication
     Dosage: UNK
     Route: 065
  139. NAPROXEN [Suspect]
     Active Substance: NAPROXEN
     Dosage: UNK
     Route: 065
  140. SIRUKUMAB [Suspect]
     Active Substance: SIRUKUMAB
     Indication: Product used for unknown indication
     Dosage: UNK
  141. SIRUKUMAB [Suspect]
     Active Substance: SIRUKUMAB
     Dosage: UNK
  142. SIRUKUMAB [Suspect]
     Active Substance: SIRUKUMAB
     Dosage: UNK
  143. GOLD SODIUM THIOMALATE [Suspect]
     Active Substance: GOLD SODIUM THIOMALATE
     Indication: Product used for unknown indication
     Dosage: UNK
  144. GOLD SODIUM THIOMALATE [Suspect]
     Active Substance: GOLD SODIUM THIOMALATE
     Dosage: UNK
     Route: 048
  145. LEFLUNOMIDE [Suspect]
     Active Substance: LEFLUNOMIDE
     Indication: Product used for unknown indication
     Dosage: UNK
     Route: 048
  146. LEFLUNOMIDE [Suspect]
     Active Substance: LEFLUNOMIDE
     Indication: Rheumatoid arthritis
  147. FLUMETHASONE [Suspect]
     Active Substance: FLUMETHASONE
     Indication: Product used for unknown indication
     Dosage: UNK
  148. HAIR KERATIN AMINO ACIDS GOLD COMPLEX [Suspect]
     Active Substance: HAIR KERATIN AMINO ACIDS GOLD COMPLEX
     Indication: Product used for unknown indication
     Dosage: UNK
  149. ARAVA [Suspect]
     Active Substance: LEFLUNOMIDE
     Indication: Product used for unknown indication
     Dosage: 20 MG
     Route: 048
  150. ARAVA [Suspect]
     Active Substance: LEFLUNOMIDE
     Indication: Rheumatoid arthritis
     Dosage: 20 MG 1 EVERY 2 DAYS
     Route: 048
  151. CETIRIZINE HYDROCHLORIDE\PSEUDOEPHEDRINE HYDROCHLORIDE [Suspect]
     Active Substance: CETIRIZINE HYDROCHLORIDE\PSEUDOEPHEDRINE HYDROCHLORIDE
     Indication: Product used for unknown indication
     Dosage: UNK
  152. CETIRIZINE HYDROCHLORIDE\PSEUDOEPHEDRINE HYDROCHLORIDE [Suspect]
     Active Substance: CETIRIZINE HYDROCHLORIDE\PSEUDOEPHEDRINE HYDROCHLORIDE
     Indication: Rheumatoid arthritis
     Dosage: UNK
  153. CETIRIZINE HYDROCHLORIDE\PSEUDOEPHEDRINE HYDROCHLORIDE [Suspect]
     Active Substance: CETIRIZINE HYDROCHLORIDE\PSEUDOEPHEDRINE HYDROCHLORIDE
     Dosage: 25 MG
  154. CETIRIZINE HYDROCHLORIDE\PSEUDOEPHEDRINE HYDROCHLORIDE [Suspect]
     Active Substance: CETIRIZINE HYDROCHLORIDE\PSEUDOEPHEDRINE HYDROCHLORIDE
     Dosage: UNK
     Route: 042
  155. CETIRIZINE HYDROCHLORIDE\PSEUDOEPHEDRINE HYDROCHLORIDE [Suspect]
     Active Substance: CETIRIZINE HYDROCHLORIDE\PSEUDOEPHEDRINE HYDROCHLORIDE
     Dosage: UNK
     Route: 042
  156. CETIRIZINE HYDROCHLORIDE\PSEUDOEPHEDRINE HYDROCHLORIDE [Suspect]
     Active Substance: CETIRIZINE HYDROCHLORIDE\PSEUDOEPHEDRINE HYDROCHLORIDE
     Dosage: 25 MG
  157. CETIRIZINE HYDROCHLORIDE\PSEUDOEPHEDRINE HYDROCHLORIDE [Suspect]
     Active Substance: CETIRIZINE HYDROCHLORIDE\PSEUDOEPHEDRINE HYDROCHLORIDE
     Dosage: 10 MG
  158. CETIRIZINE HYDROCHLORIDE\PSEUDOEPHEDRINE HYDROCHLORIDE [Suspect]
     Active Substance: CETIRIZINE HYDROCHLORIDE\PSEUDOEPHEDRINE HYDROCHLORIDE
     Dosage: 10 MG
  159. RANITIDINE [Suspect]
     Active Substance: RANITIDINE
     Indication: Product used for unknown indication
     Dosage: UNK
     Route: 065
  160. SIMPONI [Suspect]
     Active Substance: GOLIMUMAB
     Indication: Rheumatoid arthritis
     Dosage: UNK
     Route: 065
  161. SIMPONI [Suspect]
     Active Substance: GOLIMUMAB
     Indication: Prostatic specific antigen
     Dosage: UNK
     Route: 058
  162. PSEUDOEPHEDRINE [Suspect]
     Active Substance: PSEUDOEPHEDRINE
     Indication: Rheumatoid arthritis
     Dosage: UNK
     Route: 065
  163. PSEUDOEPHEDRINE [Suspect]
     Active Substance: PSEUDOEPHEDRINE
     Dosage: 25 MG
     Route: 065
  164. PSEUDOEPHEDRINE [Suspect]
     Active Substance: PSEUDOEPHEDRINE
     Dosage: 1 MG
     Route: 065
  165. PSEUDOEPHEDRINE [Suspect]
     Active Substance: PSEUDOEPHEDRINE
     Dosage: UNK
     Route: 065
  166. PSEUDOEPHEDRINE [Suspect]
     Active Substance: PSEUDOEPHEDRINE
     Dosage: 10 MG
     Route: 065
  167. SULFASALAZINE [Suspect]
     Active Substance: SULFASALAZINE
     Indication: Rheumatoid arthritis
     Dosage: UNK
  168. CALCIUM ASCORBATE [Suspect]
     Active Substance: CALCIUM ASCORBATE
     Indication: Product used for unknown indication
     Dosage: UNK
  169. CALCIUM ASCORBATE [Suspect]
     Active Substance: CALCIUM ASCORBATE
     Dosage: UNK
  170. STELARA [Suspect]
     Active Substance: USTEKINUMAB
     Indication: Product used for unknown indication
     Dosage: UNK
  171. STELARA [Suspect]
     Active Substance: USTEKINUMAB
     Dosage: 40 MG
  172. STELARA [Suspect]
     Active Substance: USTEKINUMAB
     Dosage: UNK
  173. ERELZI [Suspect]
     Active Substance: ETANERCEPT-SZZS
     Indication: Product used for unknown indication
     Dosage: UNK
     Route: 058
  174. ERELZI [Suspect]
     Active Substance: ETANERCEPT-SZZS
     Indication: Rheumatoid arthritis
     Dosage: UNK
     Route: 058
  175. ERELZI [Suspect]
     Active Substance: ETANERCEPT-SZZS
     Dosage: UNK
     Route: 065
  176. ACTEMRA [Suspect]
     Active Substance: TOCILIZUMAB
     Indication: Product used for unknown indication
     Dosage: 8 MG/KG
     Route: 042
  177. ACTEMRA [Suspect]
     Active Substance: TOCILIZUMAB
     Indication: Rheumatoid arthritis
     Dosage: 20 MG
     Route: 065
  178. ACTEMRA [Suspect]
     Active Substance: TOCILIZUMAB
     Dosage: 728 MG
     Route: 042
  179. ACTEMRA [Suspect]
     Active Substance: TOCILIZUMAB
     Dosage: UNK
     Route: 061
  180. ACTEMRA [Suspect]
     Active Substance: TOCILIZUMAB
     Dosage: 2912 MG
     Route: 042
  181. ACTEMRA [Suspect]
     Active Substance: TOCILIZUMAB
     Dosage: 3011.2 MG
     Route: 042
  182. ACTEMRA [Suspect]
     Active Substance: TOCILIZUMAB
     Dosage: UNK
     Route: 058
  183. ACTEMRA [Suspect]
     Active Substance: TOCILIZUMAB
     Dosage: 752.8 MG
     Route: 042
  184. DICLOFENAC SODIUM [Suspect]
     Active Substance: DICLOFENAC\DICLOFENAC SODIUM
     Indication: Product used for unknown indication
     Dosage: UNK
  185. HYDROCORTISONE PROBUTATE [Suspect]
     Active Substance: HYDROCORTISONE PROBUTATE
     Indication: Rheumatoid arthritis
     Dosage: UNK
  186. METHOTREXATE [Suspect]
     Active Substance: METHOTREXATE
     Indication: Rheumatoid arthritis
     Dosage: UNK
     Route: 058
  187. MINOCIN [Suspect]
     Active Substance: MINOCYCLINE HYDROCHLORIDE
     Indication: Rheumatoid arthritis
     Dosage: UNK
  188. FOSAMAX [Suspect]
     Active Substance: ALENDRONATE SODIUM
     Indication: Rheumatoid arthritis
     Dosage: UNK
     Route: 016
  189. FOSAMAX [Suspect]
     Active Substance: ALENDRONATE SODIUM
     Indication: Product used for unknown indication
     Dosage: UNK
     Route: 048
  190. FOSAMAX [Suspect]
     Active Substance: ALENDRONATE SODIUM
     Dosage: UNK
     Route: 058
  191. MEGLUMINE [Suspect]
     Active Substance: MEGLUMINE
     Indication: Product used for unknown indication
     Dosage: 1 DF
     Route: 065
  192. LEFLUNOMIDE [Suspect]
     Active Substance: LEFLUNOMIDE
     Indication: Product used for unknown indication
     Dosage: 1 MG
     Route: 065
  193. LEFLUNOMIDE [Suspect]
     Active Substance: LEFLUNOMIDE
     Indication: Rheumatoid arthritis
     Dosage: 40 MG
     Route: 065
  194. LEFLUNOMIDE [Suspect]
     Active Substance: LEFLUNOMIDE
     Dosage: 20 MG 1 EVERY 1 DAYS
     Route: 048
  195. LEFLUNOMIDE [Suspect]
     Active Substance: LEFLUNOMIDE
     Dosage: 5 MG
     Route: 048
  196. HYDROXYCHLOROQUINE [Suspect]
     Active Substance: HYDROXYCHLOROQUINE
     Indication: Rheumatoid arthritis
     Dosage: 400 MG
     Route: 048
  197. HYDROXYCHLOROQUINE [Suspect]
     Active Substance: HYDROXYCHLOROQUINE
     Dosage: UNK MG
     Route: 048
  198. HYDROXYCHLOROQUINE [Suspect]
     Active Substance: HYDROXYCHLOROQUINE
     Dosage: 1 EVERY 1 DAYS
     Route: 058
  199. PREDNISONE [Suspect]
     Active Substance: PREDNISONE
     Indication: Rheumatoid arthritis
     Dosage: 20 MG 1 EVERY 1 DAYS
     Route: 065
  200. PREDNISONE [Suspect]
     Active Substance: PREDNISONE
     Dosage: 50 MG 1 EVERY 1 DAYS
     Route: 065
  201. PREDNISONE [Suspect]
     Active Substance: PREDNISONE
     Dosage: 1 MG
     Route: 065
  202. PREDNISONE [Suspect]
     Active Substance: PREDNISONE
     Dosage: 5 MG
     Route: 065
  203. PREDNISONE [Suspect]
     Active Substance: PREDNISONE
     Dosage: 10 MG
     Route: 065
  204. KEVZARA [Suspect]
     Active Substance: SARILUMAB
     Indication: Product used for unknown indication
     Dosage: UNK
     Route: 065
  205. PHTHALYLSULFATHIAZOLE [Suspect]
     Active Substance: PHTHALYLSULFATHIAZOLE
     Indication: Rheumatoid arthritis
     Dosage: 1000 MG 1 EVERY 12 HOURS
     Route: 048
  206. PHTHALYLSULFATHIAZOLE [Suspect]
     Active Substance: PHTHALYLSULFATHIAZOLE
     Dosage: 500 MG
     Route: 048
  207. PHTHALYLSULFATHIAZOLE [Suspect]
     Active Substance: PHTHALYLSULFATHIAZOLE
     Dosage: UNK
     Route: 058
  208. PHTHALYLSULFATHIAZOLE [Suspect]
     Active Substance: PHTHALYLSULFATHIAZOLE
     Dosage: 2000 MG 1 EVERY 1 DAY
     Route: 048
  209. PHTHALYLSULFATHIAZOLE [Suspect]
     Active Substance: PHTHALYLSULFATHIAZOLE
     Dosage: 400 MG
     Route: 065
  210. PHTHALYLSULFATHIAZOLE [Suspect]
     Active Substance: PHTHALYLSULFATHIAZOLE
     Dosage: 1000 MG 2 EVERY 1 DAYS
     Route: 048
  211. ENBREL [Suspect]
     Active Substance: BENZYL ALCOHOL\ETANERCEPT
     Indication: Product used for unknown indication
     Dosage: UNK
     Route: 058
  212. ENBREL [Suspect]
     Active Substance: BENZYL ALCOHOL\ETANERCEPT
     Indication: Rheumatoid arthritis
     Dosage: 50 MG 1 EVERY 1 WEEK
     Route: 058
  213. ENBREL [Suspect]
     Active Substance: BENZYL ALCOHOL\ETANERCEPT
     Dosage: 10 MG 1 EVERY 1 WEEK
     Route: 058
  214. ENBREL [Suspect]
     Active Substance: BENZYL ALCOHOL\ETANERCEPT
     Dosage: UNK
     Route: 065
  215. ENBREL [Suspect]
     Active Substance: BENZYL ALCOHOL\ETANERCEPT
     Dosage: 50 MG 1 EVERY 1 WEEK
     Route: 058
  216. CETIRIZINE [Suspect]
     Active Substance: CETIRIZINE HYDROCHLORIDE
     Indication: Product used for unknown indication
     Dosage: 25 MG
     Route: 048
  217. CETIRIZINE [Suspect]
     Active Substance: CETIRIZINE HYDROCHLORIDE
     Indication: Rheumatoid arthritis
     Dosage: 25 MG
     Route: 048
  218. NUCALA [Suspect]
     Active Substance: MEPOLIZUMAB
     Indication: Product used for unknown indication
     Dosage: UNK
     Route: 065
  219. NUCALA [Suspect]
     Active Substance: MEPOLIZUMAB
     Dosage: UNK
     Route: 065
  220. AIMOVIG [Suspect]
     Active Substance: ERENUMAB-AOOE
     Indication: Product used for unknown indication
     Dosage: UNK
  221. AIMOVIG [Suspect]
     Active Substance: ERENUMAB-AOOE
     Indication: Migraine
     Dosage: UNK
  222. AIMOVIG [Suspect]
     Active Substance: ERENUMAB-AOOE
     Dosage: UNK
  223. AIMOVIG [Suspect]
     Active Substance: ERENUMAB-AOOE
     Dosage: UNK
  224. DESOXIMETASONE [Suspect]
     Active Substance: DESOXIMETASONE
     Indication: Rheumatoid arthritis
     Dosage: 25 MG
     Route: 048
  225. DESOXIMETASONE [Suspect]
     Active Substance: DESOXIMETASONE
     Indication: Product used for unknown indication
     Dosage: UNK
     Route: 058
  226. CHOLECALCIFEROL [Suspect]
     Active Substance: CHOLECALCIFEROL
     Indication: Product used for unknown indication
     Dosage: UNK
  227. ACTEMRA [Suspect]
     Active Substance: TOCILIZUMAB
     Indication: Rheumatoid arthritis
     Dosage: 162 MG
     Route: 058
  228. ACTEMRA [Suspect]
     Active Substance: TOCILIZUMAB
     Dosage: 8 MG
     Route: 042
  229. ACTEMRA [Suspect]
     Active Substance: TOCILIZUMAB
     Dosage: UNK
     Route: 058
  230. ACTEMRA [Suspect]
     Active Substance: TOCILIZUMAB
     Dosage: UNK
     Route: 042
  231. ACTEMRA [Suspect]
     Active Substance: TOCILIZUMAB
     Dosage: 160 MG
  232. CANDESARTAN [Suspect]
     Active Substance: CANDESARTAN
     Indication: Product used for unknown indication
     Route: 048
  233. ATOMOXETINE [Suspect]
     Active Substance: ATOMOXETINE\ATOMOXETINE HYDROCHLORIDE
     Indication: Migraine
     Dosage: 1 DF
  234. ATOMOXETINE [Suspect]
     Active Substance: ATOMOXETINE\ATOMOXETINE HYDROCHLORIDE
     Dosage: 1 DF 1 EVERY 2 DAYS
  235. ATOMOXETINE [Suspect]
     Active Substance: ATOMOXETINE\ATOMOXETINE HYDROCHLORIDE
     Dosage: 1 DF 1 EVERY 2 DAYS
  236. CHLORHEXIDINE GLUCONATE AND ISOPROPYL ALCOHOL [Suspect]
     Active Substance: CHLORHEXIDINE GLUCONATE\ISOPROPYL ALCOHOL
     Indication: Product used for unknown indication
     Dosage: UNK
     Route: 061
  237. CHLORHEXIDINE GLUCONATE AND ISOPROPYL ALCOHOL [Suspect]
     Active Substance: CHLORHEXIDINE GLUCONATE\ISOPROPYL ALCOHOL
     Dosage: UNK
     Route: 061
  238. COSENTYX [Suspect]
     Active Substance: SECUKINUMAB
     Indication: Psoriatic arthropathy
     Dosage: UNK
  239. COSENTYX [Suspect]
     Active Substance: SECUKINUMAB
     Indication: Product used for unknown indication
  240. PLAQUENIL [Suspect]
     Active Substance: HYDROXYCHLOROQUINE SULFATE
     Indication: Rheumatoid arthritis
     Route: 065
  241. ORENCIA [Suspect]
     Active Substance: ABATACEPT
     Indication: Rheumatoid arthritis
     Dosage: UNK
     Route: 065
  242. ORENCIA [Suspect]
     Active Substance: ABATACEPT
     Dosage: UNK
     Route: 042
  243. ORENCIA [Suspect]
     Active Substance: ABATACEPT
     Dosage: 750 MG
  244. ORENCIA [Suspect]
     Active Substance: ABATACEPT
     Dosage: 125 MG 1 EVERY 1 WEEK
     Route: 058
  245. ORENCIA [Suspect]
     Active Substance: ABATACEPT
     Dosage: 8365 DF
  246. ORENCIA [Suspect]
     Active Substance: ABATACEPT
     Dosage: 365 DF
  247. REMICADE [Suspect]
     Active Substance: INFLIXIMAB
     Indication: Rheumatoid arthritis
     Dosage: UNK
     Route: 042
  248. PERIOGARD [Suspect]
     Active Substance: CHLORHEXIDINE GLUCONATE
     Indication: Product used for unknown indication
     Dosage: UNK
  249. LEFLUNOMIDE [Suspect]
     Active Substance: LEFLUNOMIDE
     Indication: Product used for unknown indication
     Dosage: 10 MG 1 EVERY 1 DAYS
     Route: 048
  250. LEFLUNOMIDE [Suspect]
     Active Substance: LEFLUNOMIDE
     Indication: Rheumatoid arthritis
     Dosage: 20 MG 1 EVERY 1 DAYS
     Route: 065
  251. SULFAMETHOXAZOLE\TRIMETHOPRIM [Suspect]
     Active Substance: SULFAMETHOXAZOLE\TRIMETHOPRIM
     Indication: Product used for unknown indication
     Dosage: UNK
  252. ISOPROPYL ALCOHOL [Suspect]
     Active Substance: ISOPROPYL ALCOHOL
     Indication: Product used for unknown indication
     Dosage: UNK
     Route: 061
  253. ISOPROPYL ALCOHOL [Suspect]
     Active Substance: ISOPROPYL ALCOHOL
     Dosage: UNK
     Route: 061
  254. HUMIRA [Suspect]
     Active Substance: ADALIMUMAB
     Indication: Rheumatoid arthritis
     Dosage: UNK
     Route: 057
  255. HUMIRA [Suspect]
     Active Substance: ADALIMUMAB
     Indication: Product used for unknown indication
     Dosage: 40 MG
     Route: 058
  256. HUMIRA [Suspect]
     Active Substance: ADALIMUMAB
     Dosage: UNK
     Route: 058
  257. BUTRANS [Suspect]
     Active Substance: BUPRENORPHINE
     Indication: Product used for unknown indication
     Dosage: UNK
  258. BUTRANS [Suspect]
     Active Substance: BUPRENORPHINE
     Dosage: UNK
  259. CELEBREX [Suspect]
     Active Substance: CELECOXIB
     Indication: Product used for unknown indication
     Dosage: 2 DF 1 EVERY 1 DAYS
     Route: 048
  260. CELEBREX [Suspect]
     Active Substance: CELECOXIB
     Dosage: 2 DF 1 EVERY 1 DAYS
     Route: 065
  261. CELEBREX [Suspect]
     Active Substance: CELECOXIB
     Dosage: 2 DF 1 EVERY 1 DAYS
     Route: 048
  262. CELEBREX [Suspect]
     Active Substance: CELECOXIB
     Dosage: 2 DF 1 EVERY 1 DAYS
     Route: 065
  263. ERGOCALCIFEROL [Suspect]
     Active Substance: ERGOCALCIFEROL
     Indication: Product used for unknown indication
     Dosage: 1 DF
     Route: 065
  264. ERGOCALCIFEROL [Suspect]
     Active Substance: ERGOCALCIFEROL
     Dosage: 1 DF
     Route: 065
  265. GOLD SODIUM THIOMALATE [Suspect]
     Active Substance: GOLD SODIUM THIOMALATE
     Indication: Product used for unknown indication
     Dosage: UNK
  266. GOLD SODIUM THIOMALATE [Suspect]
     Active Substance: GOLD SODIUM THIOMALATE
     Dosage: UNK
  267. HYDROXYCHLOROQUINE SULFATE [Suspect]
     Active Substance: HYDROXYCHLOROQUINE SULFATE
     Indication: Rheumatoid arthritis
     Dosage: UNK
     Route: 016
  268. BERINERT [Suspect]
     Active Substance: HUMAN C1-ESTERASE INHIBITOR
     Indication: Product used for unknown indication
     Dosage: UNK
  269. CIMZIA [Suspect]
     Active Substance: CERTOLIZUMAB PEGOL
     Indication: Rheumatoid arthritis
     Dosage: 400 MG
     Route: 058
  270. CIMZIA [Suspect]
     Active Substance: CERTOLIZUMAB PEGOL
     Indication: Product used for unknown indication
     Dosage: 200 MG
     Route: 058
  271. CIMZIA [Suspect]
     Active Substance: CERTOLIZUMAB PEGOL
     Dosage: UNK
     Route: 058
  272. CIMZIA [Suspect]
     Active Substance: CERTOLIZUMAB PEGOL
     Dosage: 200 MG
     Route: 058
  273. CIMZIA [Suspect]
     Active Substance: CERTOLIZUMAB PEGOL
     Dosage: 200 MG 1 EVERY 2 WEEKS
     Route: 058
  274. ACETAMINOPHEN [Suspect]
     Active Substance: ACETAMINOPHEN
     Indication: Rheumatoid arthritis
     Dosage: UNK
  275. ACETAMINOPHEN [Suspect]
     Active Substance: ACETAMINOPHEN
     Indication: Product used for unknown indication
  276. ALENDRONATE SODIUM\CHOLECALCIFEROL [Suspect]
     Active Substance: ALENDRONATE SODIUM\CHOLECALCIFEROL
     Indication: Rheumatoid arthritis
     Dosage: UNK
  277. ACTEMRA [Suspect]
     Active Substance: TOCILIZUMAB
     Indication: Product used for unknown indication
     Dosage: 162 MG
     Route: 058
  278. CORTISONE ACETATE [Suspect]
     Active Substance: CORTISONE ACETATE
     Indication: Product used for unknown indication
     Dosage: 25 MG
     Route: 048
  279. CORTISONE ACETATE [Suspect]
     Active Substance: CORTISONE ACETATE
     Indication: Rheumatoid arthritis
     Dosage: UNK
     Route: 061
  280. CORTISONE ACETATE [Suspect]
     Active Substance: CORTISONE ACETATE
     Dosage: 25 MG
     Route: 048
  281. CORTISONE ACETATE [Suspect]
     Active Substance: CORTISONE ACETATE
     Dosage: 25 MG
     Route: 048
  282. DESOXIMETASONE [Suspect]
     Active Substance: DESOXIMETASONE
     Indication: Product used for unknown indication
     Dosage: UNK
     Route: 003
  283. DESOXIMETASONE [Suspect]
     Active Substance: DESOXIMETASONE
     Indication: Rheumatoid arthritis
     Dosage: 25 MG
     Route: 048
  284. DESOXIMETASONE [Suspect]
     Active Substance: DESOXIMETASONE
     Dosage: UNK
     Route: 058
  285. DICLOFENAC SODIUM [Suspect]
     Active Substance: DICLOFENAC\DICLOFENAC SODIUM
     Indication: Product used for unknown indication
     Dosage: 50 MG
     Route: 058
  286. RIBOFLAVIN [Suspect]
     Active Substance: RIBOFLAVIN
     Indication: Product used for unknown indication
     Dosage: 1 DF
  287. ZINC [Suspect]
     Active Substance: PYRITHIONE ZINC\ZINC\ZINC CHLORIDE
     Indication: Rheumatoid arthritis
  288. PREDNISONE [Suspect]
     Active Substance: PREDNISONE
     Indication: Product used for unknown indication
     Route: 048
  289. PREDNISONE [Suspect]
     Active Substance: PREDNISONE
     Indication: Product used for unknown indication
  290. PREDNISONE [Suspect]
     Active Substance: PREDNISONE
     Indication: Product used for unknown indication
  291. PREDNISONE [Suspect]
     Active Substance: PREDNISONE
     Indication: Product used for unknown indication
     Route: 048
  292. BUTRANS [Suspect]
     Active Substance: BUPRENORPHINE
     Indication: Product used for unknown indication
  293. USTEKINUMAB [Suspect]
     Active Substance: USTEKINUMAB
     Indication: Product used for unknown indication
     Route: 058
  294. USTEKINUMAB [Suspect]
     Active Substance: USTEKINUMAB
     Indication: Product used for unknown indication
  295. BUTRANS [Suspect]
     Active Substance: BUPRENORPHINE
     Indication: Product used for unknown indication
  296. PREDNISONE [Suspect]
     Active Substance: PREDNISONE
     Indication: Rheumatoid arthritis
     Route: 048
  297. GOLIMUMAB [Suspect]
     Active Substance: GOLIMUMAB
     Indication: Rheumatoid arthritis
     Route: 058
  298. CERTOLIZUMAB PEGOL [Suspect]
     Active Substance: CERTOLIZUMAB PEGOL
     Indication: Product used for unknown indication
     Route: 016
  299. CERTOLIZUMAB PEGOL [Suspect]
     Active Substance: CERTOLIZUMAB PEGOL
     Indication: Product used for unknown indication
     Route: 058

REACTIONS (124)
  - Wound [Fatal]
  - Gastrooesophageal reflux disease [Fatal]
  - Swelling [Fatal]
  - Urticaria [Fatal]
  - Muscular weakness [Fatal]
  - Type 2 diabetes mellitus [Fatal]
  - Sleep disorder [Fatal]
  - Weight increased [Fatal]
  - Treatment failure [Fatal]
  - Wheezing [Fatal]
  - Rash [Fatal]
  - Systemic lupus erythematosus [Fatal]
  - Therapeutic product effect decreased [Fatal]
  - Gastrointestinal disorder [Fatal]
  - Synovitis [Fatal]
  - Back injury [Fatal]
  - Product quality issue [Fatal]
  - Obesity [Fatal]
  - Stomatitis [Fatal]
  - Lung disorder [Fatal]
  - Psoriatic arthropathy [Fatal]
  - Pericarditis [Fatal]
  - Wound infection [Fatal]
  - Hypertension [Fatal]
  - Rheumatic fever [Fatal]
  - Drug ineffective [Fatal]
  - Vomiting [Fatal]
  - Drug hypersensitivity [Fatal]
  - Rheumatoid arthritis [Fatal]
  - Dyspepsia [Fatal]
  - Pemphigus [Fatal]
  - Taste disorder [Fatal]
  - Impaired healing [Fatal]
  - Hepatitis [Fatal]
  - Mobility decreased [Fatal]
  - Breast cancer stage III [Fatal]
  - Lower respiratory tract infection [Fatal]
  - Onychomadesis [Fatal]
  - Infusion related reaction [Fatal]
  - Musculoskeletal pain [Fatal]
  - Nasopharyngitis [Fatal]
  - C-reactive protein increased [Fatal]
  - Hypercholesterolaemia [Fatal]
  - Anti-cyclic citrullinated peptide antibody positive [Fatal]
  - Nausea [Fatal]
  - Pain [Fatal]
  - Adverse reaction [Fatal]
  - Hepatic enzyme increased [Fatal]
  - Peripheral venous disease [Fatal]
  - Injection site reaction [Fatal]
  - Condition aggravated [Fatal]
  - Hypoaesthesia [Fatal]
  - Finger deformity [Fatal]
  - Peripheral swelling [Fatal]
  - Joint range of motion decreased [Fatal]
  - Arthralgia [Fatal]
  - Abdominal distension [Fatal]
  - Coeliac disease [Fatal]
  - Helicobacter infection [Fatal]
  - Exposure during pregnancy [Fatal]
  - Headache [Fatal]
  - Live birth [Fatal]
  - Bursitis [Fatal]
  - Injury [Fatal]
  - Epilepsy [Fatal]
  - Blister [Fatal]
  - Malaise [Fatal]
  - Ill-defined disorder [Fatal]
  - Osteoarthritis [Fatal]
  - Abdominal discomfort [Fatal]
  - Glossodynia [Fatal]
  - Blood cholesterol increased [Fatal]
  - Duodenal ulcer perforation [Fatal]
  - Confusional state [Fatal]
  - Dry mouth [Fatal]
  - Liver injury [Fatal]
  - Fatigue [Fatal]
  - Migraine [Fatal]
  - Drug-induced liver injury [Fatal]
  - Onychomycosis [Fatal]
  - Drug intolerance [Fatal]
  - Arthropathy [Fatal]
  - Contraindicated product administered [Fatal]
  - Folliculitis [Fatal]
  - Lip dry [Fatal]
  - Hand deformity [Fatal]
  - Irritable bowel syndrome [Fatal]
  - Dizziness [Fatal]
  - Insomnia [Fatal]
  - Pneumonia [Fatal]
  - Memory impairment [Fatal]
  - Gastrointestinal disorder [Fatal]
  - Neck pain [Fatal]
  - Intentional product use issue [Fatal]
  - Dyspnoea [Fatal]
  - Muscle injury [Fatal]
  - Musculoskeletal stiffness [Fatal]
  - Liver function test increased [Fatal]
  - Muscle spasms [Fatal]
  - Off label use [Fatal]
  - Gait inability [Fatal]
  - Paraesthesia [Fatal]
  - Blepharospasm [Fatal]
  - Grip strength decreased [Fatal]
  - Asthenia [Fatal]
  - General physical health deterioration [Fatal]
  - Abdominal pain upper [Fatal]
  - Fall [Fatal]
  - Fibromyalgia [Fatal]
  - Loss of personal independence in daily activities [Fatal]
  - Joint swelling [Fatal]
  - Alopecia [Fatal]
  - Night sweats [Fatal]
  - Hypersensitivity [Fatal]
  - C-reactive protein abnormal [Fatal]
  - Pain in extremity [Fatal]
  - Maternal exposure during pregnancy [Fatal]
  - Diarrhoea [Fatal]
  - Facet joint syndrome [Fatal]
  - Nail disorder [Fatal]
  - Depression [Fatal]
  - Inflammation [Fatal]
  - Product label confusion [Fatal]
  - Product use in unapproved indication [Fatal]
